FAERS Safety Report 24450366 (Version 1)
Quarter: 2024Q4

REPORT INFORMATION
  Report Type: Spontaneous
  Country: US (occurrence: None)
  Receive Date: 20241016
  Receipt Date: 20241016
  Transmission Date: 20250115
  Serious: Yes (Other)
  Sender: Public
  Company Number: None

PATIENT
  Age: 59 Year
  Sex: Female

DRUGS (1)
  1. HUMIRA [Suspect]
     Active Substance: ADALIMUMAB
     Dates: start: 20230426, end: 20240711

REACTIONS (5)
  - Fatigue [None]
  - Drug ineffective [None]
  - Therapy cessation [None]
  - Feeling abnormal [None]
  - Joint swelling [None]

NARRATIVE: CASE EVENT DATE: 20241016
